FAERS Safety Report 10423299 (Version 1)
Quarter: 2014Q3

REPORT INFORMATION
  Report Type: Spontaneous
  Country: US (occurrence: None)
  Receive Date: 20140722
  Receipt Date: 20140722
  Transmission Date: 20150326
  Serious: No
  Sender: FDA-Public Use
  Company Number: 163-10004-14062182

PATIENT
  Age: 45 Year
  Sex: Female

DRUGS (6)
  1. OTEZLA [Suspect]
     Active Substance: APREMILAST
     Indication: PSORIATIC ARTHROPATHY
     Route: 048
     Dates: start: 20140607
  2. IBUPROFEN. [Concomitant]
     Active Substance: IBUPROFEN
  3. PREDNISONE. [Concomitant]
     Active Substance: PREDNISONE
  4. CYCLOSPORINE (CICLOSPORIN) [Concomitant]
     Active Substance: CYCLOSPORINE
  5. TRAMADOL [Concomitant]
     Active Substance: TRAMADOL
  6. MELOXICAM. [Concomitant]
     Active Substance: MELOXICAM

REACTIONS (2)
  - Decreased appetite [None]
  - Nausea [None]

NARRATIVE: CASE EVENT DATE: 20140607
